FAERS Safety Report 24653323 (Version 1)
Quarter: 2024Q4

REPORT INFORMATION
  Report Type: Report from Study
  Country: ZA (occurrence: ZA)
  Receive Date: 20241122
  Receipt Date: 20241122
  Transmission Date: 20250115
  Serious: Yes (Hospitalization, Other)
  Sender: ALEXION PHARMACEUTICALS
  Company Number: ZA-AstraZeneca-CH-00748073A

PATIENT
  Age: 64 Year

DRUGS (9)
  1. BUDESONIDE\FORMOTEROL [Suspect]
     Active Substance: BUDESONIDE\FORMOTEROL
  2. UNSPECIFIED INGREDIENT [Suspect]
     Active Substance: UNSPECIFIED INGREDIENT
     Route: 065
  3. THIAMINE [Concomitant]
     Active Substance: THIAMINE
     Route: 065
  4. Pantocid [Concomitant]
     Route: 065
  5. BUTYLSCOPOLAMINE BROMIDE [Concomitant]
     Active Substance: BUTYLSCOPOLAMINE BROMIDE
  6. Broncol [Concomitant]
     Route: 065
  7. DAFIRO [Concomitant]
     Active Substance: AMLODIPINE\VALSARTAN
     Route: 065
  8. ALBUTEROL SULFATE [Concomitant]
     Active Substance: ALBUTEROL SULFATE
     Route: 065
  9. MELOXICAM [Concomitant]
     Active Substance: MELOXICAM
     Route: 065

REACTIONS (5)
  - Cerebrovascular accident [Unknown]
  - Renal failure [Unknown]
  - Cardiac arrest [Unknown]
  - Hepatic failure [Unknown]
  - Asthma [Unknown]
